FAERS Safety Report 9928332 (Version 2)
Quarter: 2014Q1

REPORT INFORMATION
  Report Type: Spontaneous
  Country: DE (occurrence: DE)
  Receive Date: 20140227
  Receipt Date: 20140328
  Transmission Date: 20141002
  Serious: Yes (Other)
  Sender: FDA-Public Use
  Company Number: DE-ROCHE-1356435

PATIENT
  Age: 55 Year
  Sex: Male
  Weight: 90.5 kg

DRUGS (11)
  1. MABTHERA [Suspect]
     Indication: GRANULOMATOSIS WITH POLYANGIITIS
     Dosage: FOUR ADMINISTRATION
     Route: 042
     Dates: start: 201211
  2. MABTHERA [Suspect]
     Dosage: TWO ADMINISTRATIONS
     Route: 042
     Dates: start: 201310
  3. CELLCEPT [Suspect]
     Indication: GRANULOMATOSIS WITH POLYANGIITIS
     Dosage: GIVEN FOR OVER 10 YEARS
     Route: 065
     Dates: end: 201211
  4. PREDNISOLON [Suspect]
     Indication: GRANULOMATOSIS WITH POLYANGIITIS
     Dosage: GIVEN 7 TIMES, TAPERING DOSE.
     Route: 048
     Dates: start: 201310
  5. ENDOXAN [Suspect]
     Indication: GRANULOMATOSIS WITH POLYANGIITIS
     Dosage: GIVEN FOR OVER 10 YEARS.
     Route: 065
     Dates: end: 201211
  6. DECORTIN [Suspect]
     Indication: GRANULOMATOSIS WITH POLYANGIITIS
     Dosage: GIVEN FOR OVER 10 YEARS
     Route: 065
     Dates: end: 201211
  7. BISOPROLOL [Concomitant]
     Indication: HYPERTENSION
     Route: 048
     Dates: start: 2012
  8. ASS [Concomitant]
     Indication: THROMBOSIS PROPHYLAXIS
     Route: 048
     Dates: start: 2012
  9. CALCITRIOL [Concomitant]
     Indication: RENAL FAILURE
     Route: 048
     Dates: start: 201310
  10. SODIUM BICARBONATE [Concomitant]
     Indication: ACIDOSIS
     Route: 048
     Dates: start: 201310
  11. SIMVASTATIN [Concomitant]
     Indication: HYPERCHOLESTEROLAEMIA
     Route: 048

REACTIONS (5)
  - Pneumocystis jirovecii pneumonia [Recovering/Resolving]
  - Abscess [Unknown]
  - Renal failure [Unknown]
  - Antineutrophil cytoplasmic antibody increased [Unknown]
  - Pyrexia [Unknown]
